FAERS Safety Report 17666064 (Version 1)
Quarter: 2020Q2

REPORT INFORMATION
  Report Type: Spontaneous
  Country: CN (occurrence: CN)
  Receive Date: 20200414
  Receipt Date: 20200414
  Transmission Date: 20200713
  Serious: Yes (Other)
  Sender: FDA-Public Use
  Company Number: CN-ROCHE-2577426

PATIENT
  Age: 64 Year
  Sex: Male
  Weight: 50 kg

DRUGS (6)
  1. DEXAMETHASONE. [Concomitant]
     Active Substance: DEXAMETHASONE
     Route: 041
  2. CALCIUM GLUCONATE. [Concomitant]
     Active Substance: CALCIUM GLUCONATE
     Route: 041
  3. SODIUM CHLORIDE. [Concomitant]
     Active Substance: SODIUM CHLORIDE
     Route: 041
     Dates: start: 20200325, end: 20200325
  4. MABTHERA [Suspect]
     Active Substance: RITUXIMAB
     Indication: LYMPHOMA
     Route: 041
     Dates: start: 20200325, end: 20200325
  5. CHLORPHENAMINE MALEATE [Concomitant]
     Active Substance: CHLORPHENIRAMINE MALEATE
     Route: 030
  6. SOLU-MEDROL [Concomitant]
     Active Substance: METHYLPREDNISOLONE SODIUM SUCCINATE
     Route: 042

REACTIONS (5)
  - Chills [Recovering/Resolving]
  - Temperature intolerance [Recovering/Resolving]
  - Hyperpyrexia [Recovering/Resolving]
  - Palpitations [Recovered/Resolved]
  - Pyrexia [Recovering/Resolving]

NARRATIVE: CASE EVENT DATE: 20200325
